FAERS Safety Report 12267331 (Version 1)
Quarter: 2016Q2

REPORT INFORMATION
  Report Type: Spontaneous
  Country: US (occurrence: US)
  Receive Date: 20160414
  Receipt Date: 20160414
  Transmission Date: 20160815
  Serious: Yes (Other)
  Sender: FDA-Public Use
  Company Number: US-MDT-ADR-2015-02395

PATIENT
  Age: 60 Year
  Sex: Male

DRUGS (13)
  1. BACLOFEN. [Suspect]
     Active Substance: BACLOFEN
     Dosage: 111.97 MCG/DAY
     Route: 037
     Dates: start: 20151214
  2. CLONIDINE. [Suspect]
     Active Substance: CLONIDINE
     Dosage: 84.93MCG/DAY
     Route: 037
     Dates: end: 20151214
  3. ZOCOR [Suspect]
     Active Substance: SIMVASTATIN
  4. AMBIEN [Suspect]
     Active Substance: ZOLPIDEM TARTRATE
  5. PRILOSEC [Suspect]
     Active Substance: OMEPRAZOLE MAGNESIUM
  6. ASPIRIN. [Suspect]
     Active Substance: ASPIRIN
  7. BACLOFEN. [Suspect]
     Active Substance: BACLOFEN
     Dosage: 148MCG/DAY
     Route: 037
     Dates: end: 20151214
  8. DILAUDID [Suspect]
     Active Substance: HYDROMORPHONE HYDROCHLORIDE
     Dosage: 4.247MG/DAY
     Route: 037
     Dates: end: 20151214
  9. DILAUDID [Suspect]
     Active Substance: HYDROMORPHONE HYDROCHLORIDE
     Dosage: 3.199 MG/DAY
     Route: 037
     Dates: start: 20151214
  10. CLONIDINE. [Suspect]
     Active Substance: CLONIDINE
     Dosage: 63.99 MCG/DAY
     Route: 037
     Dates: start: 20151214
  11. PAMELOR [Suspect]
     Active Substance: NORTRIPTYLINE HYDROCHLORIDE
  12. CELEXA [Suspect]
     Active Substance: CITALOPRAM HYDROBROMIDE
  13. IBUPROFEN. [Suspect]
     Active Substance: IBUPROFEN

REACTIONS (4)
  - Incorrect drug administration rate [None]
  - Device malfunction [None]
  - Staphylococcus test [Unknown]
  - Pain [Unknown]
